FAERS Safety Report 6043560-X (Version None)
Quarter: 2009Q1

REPORT INFORMATION
  Report Type: 
  Country: None (occurrence: None)
  Receive Date: 20090115
  Receipt Date: 20090112
  Transmission Date: 20090719
  Serious: Yes (Hospitalization)
  Sender: FDA-Public Use
  Company Number: 039434

PATIENT
  Age: 49 Year
  Sex: Female

DRUGS (5)
  1. METHOTREXATE [Suspect]
     Indication: RHEUMATOID ARTHRITIS
     Dosage: 8 MG 1 WEEK, ORAL
     Route: 048
  2. ABATACEPT [Suspect]
     Indication: RHEUMATOID ARTHRITIS
     Dosage: 500 MG 4 WEEK, INTRAVENOUS
     Route: 042
     Dates: start: 20070314, end: 20081218
  3. FOLIC ACID [Concomitant]
  4. FERROMIA (FERROUS CITRATE) [Concomitant]
  5. CLOBETASOL PROPIONATE [Concomitant]

REACTIONS (1)
  - BREAST CANCER FEMALE [None]
